FAERS Safety Report 15037895 (Version 2)
Quarter: 2018Q3

REPORT INFORMATION
  Report Type: Spontaneous
  Country: ZA (occurrence: ZA)
  Receive Date: 20180620
  Receipt Date: 20180813
  Transmission Date: 20181010
  Serious: Yes (Hospitalization, Other)
  Sender: FDA-Public Use
  Company Number: ZA-MYLANLABS-2018M1044841

PATIENT
  Age: 34 Year
  Sex: Male
  Weight: 69.3 kg

DRUGS (14)
  1. ISONIAZID. [Suspect]
     Active Substance: ISONIAZID
     Indication: TUBERCULOSIS
     Dosage: 300 MG, QD
     Route: 048
     Dates: start: 20160718, end: 20160803
  2. ISONIAZID. [Suspect]
     Active Substance: ISONIAZID
     Dosage: 300 MG, QD
     Route: 048
     Dates: start: 20170304
  3. PREDNISONE. [Concomitant]
     Active Substance: PREDNISONE
     Indication: TUBERCULOSIS
     Dosage: UNK
     Dates: start: 20170421
  4. EPILIM [Concomitant]
     Active Substance: VALPROATE SODIUM
     Indication: TUBERCULOSIS
     Dosage: UNK
     Dates: start: 20170421
  5. LEVOFLOXACIN. [Suspect]
     Active Substance: LEVOFLOXACIN
     Indication: TUBERCULOSIS
     Dosage: 1 G, QD
     Route: 048
     Dates: start: 20170404
  6. BEDAQUILINE [Suspect]
     Active Substance: BEDAQUILINE
     Indication: TUBERCULOSIS
     Dosage: 200 MG, QOD
     Route: 048
     Dates: start: 20160802, end: 20170203
  7. CLOFAZIMINE [Suspect]
     Active Substance: CLOFAZIMINE
     Indication: TUBERCULOSIS
     Dosage: 100 MG, QD
     Route: 048
  8. ETHAMBUTOL [Suspect]
     Active Substance: ETHAMBUTOL HYDROCHLORIDE
     Indication: TUBERCULOSIS
     Dosage: UNK
     Dates: start: 20160718, end: 20160803
  9. ETHAMBUTOL [Suspect]
     Active Substance: ETHAMBUTOL HYDROCHLORIDE
     Dosage: 1200 UNK, UNK
     Route: 065
     Dates: start: 20160803, end: 20170404
  10. DELAMANID [Suspect]
     Active Substance: DELAMANID
     Indication: TUBERCULOSIS
     Dosage: 100 MG, BID
     Route: 048
     Dates: start: 20170421
  11. TERIZIDONE [Suspect]
     Active Substance: TERIZIDONE
     Indication: TUBERCULOSIS
     Dosage: UNK
     Dates: start: 20160718, end: 20160803
  12. PYRAZINAMIDE. [Suspect]
     Active Substance: PYRAZINAMIDE
     Indication: TUBERCULOSIS
     Dosage: 1.75 G, QD
     Route: 048
     Dates: start: 20170404
  13. TERIZIDONE [Suspect]
     Active Substance: TERIZIDONE
     Dosage: 750 UNK
     Dates: start: 20160803
  14. ETHIONAMIDE [Concomitant]
     Active Substance: ETHIONAMIDE
     Indication: TUBERCULOSIS
     Dosage: UNK
     Dates: start: 20160618

REACTIONS (5)
  - Facial paralysis [Unknown]
  - Seizure [Recovered/Resolved]
  - Confusional state [Unknown]
  - Intracranial mass [Unknown]
  - Incorrect drug administration duration [Unknown]

NARRATIVE: CASE EVENT DATE: 201702
